FAERS Safety Report 8990167 (Version 3)
Quarter: 2013Q1

REPORT INFORMATION
  Report Type: Spontaneous
  Country: US (occurrence: US)
  Receive Date: 20121228
  Receipt Date: 20130122
  Transmission Date: 20140127
  Serious: Yes (Death)
  Sender: FDA-Public Use
  Company Number: US-US-EMD SERONO, INC.-7184366

PATIENT
  Age: 43 Year
  Sex: Female
  Weight: 86 kg

DRUGS (16)
  1. SINGULAIR [Concomitant]
     Indication: PRODUCT USED FOR UNKNOWN INDICATION
  2. SYBMICORT [Concomitant]
     Indication: PRODUCT USED FOR UNKNOWN INDICATION
  3. AZITHROMYCIN [Concomitant]
     Indication: PRODUCT USED FOR UNKNOWN INDICATION
  4. PAXIL [Concomitant]
     Indication: PRODUCT USED FOR UNKNOWN INDICATION
  5. ATIVAN [Concomitant]
     Indication: PRODUCT USED FOR UNKNOWN INDICATION
  6. TRAZODONE [Concomitant]
     Indication: PRODUCT USED FOR UNKNOWN INDICATION
  7. CATAFLAM [Concomitant]
     Indication: PRODUCT USED FOR UNKNOWN INDICATION
  8. OMEPRAZOLE [Concomitant]
     Indication: PRODUCT USED FOR UNKNOWN INDICATION
  9. VENTOLIN [Concomitant]
     Indication: PRODUCT USED FOR UNKNOWN INDICATION
  10. PROCHLORPER [Concomitant]
     Indication: PRODUCT USED FOR UNKNOWN INDICATION
  11. EPINASTINE [Concomitant]
     Indication: PRODUCT USED FOR UNKNOWN INDICATION
  12. REBIF [Suspect]
     Indication: MULTIPLE SCLEROSIS
     Route: 058
     Dates: start: 20121207, end: 20121221
  13. REBIF [Suspect]
     Route: 058
     Dates: start: 20121221
  14. TOPROL XL [Concomitant]
     Indication: PRODUCT USED FOR UNKNOWN INDICATION
  15. DOXEPIN HCL [Concomitant]
     Indication: PRODUCT USED FOR UNKNOWN INDICATION
  16. CAMILA [Concomitant]
     Indication: PRODUCT USED FOR UNKNOWN INDICATION

REACTIONS (1)
  - Cardiac failure [Fatal]
